FAERS Safety Report 25705553 (Version 1)
Quarter: 2025Q3

REPORT INFORMATION
  Report Type: Spontaneous
  Country: US (occurrence: US)
  Receive Date: 20250820
  Receipt Date: 20250820
  Transmission Date: 20251021
  Serious: Yes (Death, Other)
  Sender: JOHNSON AND JOHNSON
  Company Number: US-JNJFOC-20250817598

PATIENT
  Age: 57 Year
  Sex: Male

DRUGS (1)
  1. CILTACABTAGENE AUTOLEUCEL [Suspect]
     Active Substance: CILTACABTAGENE AUTOLEUCEL
     Indication: Plasma cell myeloma refractory
     Route: 065

REACTIONS (9)
  - Multiple organ dysfunction syndrome [Fatal]
  - Cytokine release syndrome [Unknown]
  - Immune effector cell-associated HLH-like syndrome [Recovering/Resolving]
  - Neutropenia [Unknown]
  - Septic shock [Unknown]
  - Pseudomonal bacteraemia [Unknown]
  - Cytomegalovirus viraemia [Unknown]
  - Pneumonia [Unknown]
  - Infection [Unknown]
